FAERS Safety Report 24812257 (Version 1)
Quarter: 2025Q1

REPORT INFORMATION
  Report Type: Spontaneous
  Country: US (occurrence: US)
  Receive Date: 20250106
  Receipt Date: 20250106
  Transmission Date: 20250409
  Serious: Yes (Disabling)
  Sender: GE HEALTHCARE
  Company Number: US-GE HEALTHCARE-2024CSU015181

PATIENT
  Age: 69 Year
  Sex: Female
  Weight: 41.723 kg

DRUGS (1)
  1. CLARISCAN [Suspect]
     Active Substance: GADOTERATE MEGLUMINE
     Indication: Magnetic resonance imaging head
     Route: 042
     Dates: start: 20241104, end: 20241104

REACTIONS (5)
  - Myalgia [Not Recovered/Not Resolved]
  - Contrast media deposition [Not Recovered/Not Resolved]
  - Headache [Not Recovered/Not Resolved]
  - Injection site pain [Not Recovered/Not Resolved]
  - Chills [Not Recovered/Not Resolved]

NARRATIVE: CASE EVENT DATE: 20241104
